FAERS Safety Report 25374798 (Version 1)
Quarter: 2025Q2

REPORT INFORMATION
  Report Type: Other
  Country: GB (occurrence: GB)
  Receive Date: 20250529
  Receipt Date: 20250529
  Transmission Date: 20250716
  Serious: Yes (Other)
  Sender: GLENMARK
  Company Number: GB-MHRA-TPP42120440C3822341YC1747384264381

PATIENT
  Age: 47 Year
  Sex: Female
  Weight: 100 kg

DRUGS (6)
  1. DAPAGLIFLOZIN [Suspect]
     Active Substance: DAPAGLIFLOZIN
     Indication: Ill-defined disorder
     Dosage: 10 MILLIGRAM, OD
     Route: 048
     Dates: start: 20250225, end: 20250516
  2. MOMETASONE [Concomitant]
     Active Substance: MOMETASONE
     Indication: Ill-defined disorder
     Dosage: 2 DOSAGE FORM, BID, EACH NOSTRIL FO...
     Route: 045
     Dates: start: 20250327, end: 20250410
  3. PENICILLIN V [Concomitant]
     Active Substance: PENICILLIN V
     Indication: Ill-defined disorder
     Dosage: 2 DOSAGE FORM, QID, FOR 5 DAYS TO...
     Route: 048
     Dates: start: 20250327, end: 20250401
  4. ESTRADIOL [Concomitant]
     Active Substance: ESTRADIOL
     Indication: Ill-defined disorder
     Dosage: 1 DOSAGE FORM, QD, DUE MIRENA CHANGE APRIL 2027
     Route: 048
     Dates: start: 20250516
  5. Easyhaler [Concomitant]
     Indication: Ill-defined disorder
     Dosage: 1 DOSAGE FORM, BID, (PLEASE RETURN YOUR...
     Dates: start: 20241202, end: 20250331
  6. METFORMIN [Concomitant]
     Active Substance: METFORMIN HYDROCHLORIDE
     Indication: Ill-defined disorder
     Dosage: 1 DOSAGE FORM, BID, WITH FOOD
     Route: 048
     Dates: start: 20241218

REACTIONS (2)
  - Myalgia [Recovered/Resolved]
  - Vulvovaginal candidiasis [Recovered/Resolved]

NARRATIVE: CASE EVENT DATE: 20250516
